FAERS Safety Report 11293405 (Version 2)
Quarter: 2015Q3

REPORT INFORMATION
  Report Type: Report from Study
  Country: JP (occurrence: JP)
  Receive Date: 20150722
  Receipt Date: 20150817
  Transmission Date: 20151125
  Serious: Yes (Hospitalization)
  Sender: FDA-Public Use
  Company Number: JP-ASTRAZENECA-2015SE70520

PATIENT
  Age: 58 Year
  Sex: Female
  Weight: 52 kg

DRUGS (5)
  1. ARIMIDEX [Suspect]
     Active Substance: ANASTROZOLE
     Indication: BREAST CANCER FEMALE
     Route: 048
     Dates: start: 20061205, end: 20071003
  2. SULPIRIDE [Concomitant]
     Active Substance: SULPIRIDE
     Dosage: DOSE UNKNOWN
     Route: 065
  3. SENNA LEAF [Concomitant]
     Active Substance: SENNA LEAF
     Dosage: DOSE UNKNOWN
     Route: 065
  4. LAC-B [Concomitant]
     Active Substance: BIFIDOBACTERIUM SPP.
     Dosage: DOSE UNKNOWN
     Route: 065
  5. MEBUTIT [Concomitant]
     Active Substance: TRIMEBUTINE MALEATE
     Dosage: DOSE UNKNOWN
     Route: 065

REACTIONS (3)
  - Haematochezia [Recovered/Resolved]
  - Haemostasis [Recovered/Resolved]
  - Post procedural haemorrhage [Recovered/Resolved]

NARRATIVE: CASE EVENT DATE: 20071003
